FAERS Safety Report 19081809 (Version 23)
Quarter: 2021Q3

REPORT INFORMATION
  Report Type: Spontaneous
  Country: GB (occurrence: GB)
  Receive Date: 20210401
  Receipt Date: 20210818
  Transmission Date: 20211014
  Serious: Yes (Disabling, Other)
  Sender: FDA-Public Use
  Company Number: GB-JNJFOC-20210359461

PATIENT
  Age: 24 Year
  Sex: Male

DRUGS (31)
  1. RISPERDAL [Suspect]
     Active Substance: RISPERIDONE
     Route: 065
  2. TEMAZEPAM. [Suspect]
     Active Substance: TEMAZEPAM
     Dosage: 10 MILLIGRAM, DAILY, 10 MG DAILY
     Route: 048
  3. TRAZODONE [Suspect]
     Active Substance: TRAZODONE HYDROCHLORIDE
     Dosage: 100 MILLIGRAM
     Route: 048
  4. SERTRALINE HYDROCHLORIDE TEVA [Suspect]
     Active Substance: SERTRALINE HYDROCHLORIDE
     Indication: ANTIDEPRESSANT THERAPY
     Dosage: 100 MILLIGRAM, UNK
     Route: 048
     Dates: start: 2014
  5. TEMAZEPAM. [Suspect]
     Active Substance: TEMAZEPAM
     Indication: POOR QUALITY SLEEP
     Dosage: 10 MILLIGRAM, DAILY, 10 MG DAILY
     Route: 048
  6. MIRTAZAPINE. [Suspect]
     Active Substance: MIRTAZAPINE
     Dosage: 7.5MG ? UPTITRATED YO 45MG DAILY THEN REDUCED TDOWN TO STOP
     Route: 065
     Dates: start: 2014, end: 2015
  7. CITALOPRAM [Suspect]
     Active Substance: CITALOPRAM HYDROBROMIDE
     Dosage: 10 MILLIGRAM, UNK, 10 MG INITIALLY
     Route: 048
     Dates: start: 201507
  8. SERTRALINE [Suspect]
     Active Substance: SERTRALINE HYDROCHLORIDE
     Indication: ANTIDEPRESSANT THERAPY
     Dosage: 50MG INITALLY THEN 100MG?50 MILLIGRAM, UNK, 50 MG INITIALLY THEN 100 MG
     Route: 048
     Dates: start: 2014
  9. SERTRALINE [Suspect]
     Active Substance: SERTRALINE HYDROCHLORIDE
     Dosage: 100 MILLIGRAM, UNK?50 MILLIGRAM, UNK, 50 MG INITIALLY THEN 100 MG
     Route: 048
     Dates: start: 2014
  10. MIRTAZAPINE. [Suspect]
     Active Substance: MIRTAZAPINE
     Dosage: 45 MILLIGRAM (7.5MG?UPTITRATED YO 45MG DAILY THEN REDUCED TDOWN TO STOP )
     Route: 048
     Dates: start: 2014, end: 2015
  11. TRAZODONE [Suspect]
     Active Substance: TRAZODONE HYDROCHLORIDE
     Dosage: 50 MILLIGRAM (THEN REDUCED TO 50 MG BEFORE STOPPING)
     Route: 048
     Dates: end: 201507
  12. RISPERDAL [Suspect]
     Active Substance: RISPERIDONE
     Route: 048
  13. MIRTAZAPINE. [Suspect]
     Active Substance: MIRTAZAPINE
     Dosage: 45 MILLIGRAM (7.5MG?UPTITRATED YO 45MG DAILY THEN REDUCED TDOWN TO STOP )
     Route: 048
     Dates: end: 2015
  14. TRAZODONE HYDROCHLORIDE. [Suspect]
     Active Substance: TRAZODONE HYDROCHLORIDE
     Indication: ANTIDEPRESSANT THERAPY
     Dosage: 50MG THEN REDUCED TO 50MG BEFORE STOPPING
     Route: 048
     Dates: start: 2015, end: 201507
  15. RISPERDAL [Suspect]
     Active Substance: RISPERIDONE
     Route: 048
  16. ESCITALOPRAM [Suspect]
     Active Substance: ESCITALOPRAM OXALATE
     Indication: ANTIDEPRESSANT THERAPY
     Dosage: 10 MILLIGRAM, DAILY 10MG DAILY
     Route: 048
     Dates: start: 201507, end: 201509
  17. ESCITALOPRAM [Suspect]
     Active Substance: ESCITALOPRAM OXALATE
     Route: 065
  18. CITALOPRAM [Suspect]
     Active Substance: CITALOPRAM HYDROBROMIDE
     Indication: ILL-DEFINED DISORDER
     Dosage: 10 MG INITIALLY?10 MILLIGRAM, UNK, 10 MG INITIALLY
     Route: 048
     Dates: start: 201507
  19. TRAZODONE [Suspect]
     Active Substance: TRAZODONE HYDROCHLORIDE
     Dosage: 50 MILLIGRAM (THEN REDUCED TO 50 MG BEFORE STOPPING)
     Route: 048
     Dates: end: 201507
  20. TRAZODONE HYDROCHLORIDE. [Suspect]
     Active Substance: TRAZODONE HYDROCHLORIDE
     Dosage: 50MG INITIALLY INCREASED TO 100MG DAILY THEN REDUCED TO 50MG BEFORE STOPPING
     Route: 048
     Dates: start: 2015, end: 201507
  21. RISPERDAL [Suspect]
     Active Substance: RISPERIDONE
     Indication: ILL-DEFINED DISORDER
     Route: 048
  22. TRAZODONE [Suspect]
     Active Substance: TRAZODONE HYDROCHLORIDE
     Indication: ANTIDEPRESSANT THERAPY
     Dosage: 50MG INITAILLY INCREASED TO 100MG DAILY THEN REDUCED TO 50MG BEFORE STOPPING
     Route: 048
     Dates: start: 2015, end: 201507
  23. TEMAZEPAM. [Suspect]
     Active Substance: TEMAZEPAM
     Dosage: 10 MILLIGRAM, DAILY, 10 MG DAILY
     Route: 048
  24. TRAZODONE [Suspect]
     Active Substance: TRAZODONE HYDROCHLORIDE
     Indication: POOR QUALITY SLEEP
     Dosage: 100 MILLIGRAM, QD (INCREASED TO 100 MG DAILY)
     Route: 048
     Dates: start: 2015, end: 201507
  25. TRAZODONE [Suspect]
     Active Substance: TRAZODONE HYDROCHLORIDE
     Dosage: 100 MILLIGRAM
     Route: 048
  26. TRAZODONE [Suspect]
     Active Substance: TRAZODONE HYDROCHLORIDE
     Dosage: 100 MILLIGRAM, QD (INCREASED TO 100 MG DAILY)
     Route: 048
     Dates: start: 2015, end: 201507
  27. TRAZODONE [Suspect]
     Active Substance: TRAZODONE HYDROCHLORIDE
     Dosage: 50MG INITAILLY INCREASED TO 100MG DAILY THEN REDUCED TO 50MG BEFORE STOPPING
     Route: 048
     Dates: start: 2015, end: 201507
  28. CIPRALEX [Suspect]
     Active Substance: ESCITALOPRAM OXALATE
     Indication: ANTIDEPRESSANT THERAPY
     Dosage: 10 MILLIGRAM, DAILY, 10 MG DAILY
     Route: 048
     Dates: start: 201507, end: 201509
  29. TRAZODONE HYDROCHLORIDE. [Suspect]
     Active Substance: TRAZODONE HYDROCHLORIDE
     Indication: POOR QUALITY SLEEP
     Dosage: 100 MG, QD (INCREASED TO 100MG DAILY)
     Route: 048
     Dates: start: 2015, end: 201507
  30. MIRTAZAPINE. [Suspect]
     Active Substance: MIRTAZAPINE
     Indication: ANTIDEPRESSANT THERAPY
     Dosage: 7.5MG ? UPTITRATED YO 45MG DAILY THEN REDUCED TDOWN TO STOP?7.5 MILLIGRAM, UNK, 7.5MG?UPTITRATED TO
     Route: 048
     Dates: start: 2014, end: 2015
  31. CITALOPRAM [Suspect]
     Active Substance: CITALOPRAM HYDROBROMIDE
     Dosage: 10 MILLIGRAM, UNK, 10 MG INITIALLY
     Route: 048
     Dates: start: 201507

REACTIONS (23)
  - Mood swings [Unknown]
  - Feeling abnormal [Unknown]
  - Sedation [Unknown]
  - Homicidal ideation [Unknown]
  - Hallucination, visual [Unknown]
  - Aggression [Unknown]
  - Insomnia [Unknown]
  - Headache [Unknown]
  - Suicidal ideation [Unknown]
  - Suicide attempt [Unknown]
  - Somnolence [Unknown]
  - Irritability [Unknown]
  - Hallucination, auditory [Unknown]
  - Confusional state [Unknown]
  - Amnesia [Unknown]
  - Paranoia [Unknown]
  - Psychotic disorder [Unknown]
  - Intrusive thoughts [Unknown]
  - Loss of libido [Unknown]
  - Anger [Unknown]
  - Agitation [Unknown]
  - Tachyphrenia [Unknown]
  - Nausea [Unknown]
